FAERS Safety Report 12626818 (Version 2)
Quarter: 2016Q3

REPORT INFORMATION
  Report Type: Spontaneous
  Country: IT (occurrence: IT)
  Receive Date: 20160805
  Receipt Date: 20160901
  Transmission Date: 20161109
  Serious: Yes (Hospitalization)
  Sender: FDA-Public Use
  Company Number: IT-MYLANLABS-2016M1031938

PATIENT

DRUGS (4)
  1. ALFA-ESTRADIOL [Suspect]
     Active Substance: ALFATRADIOL
     Indication: ANDROGENETIC ALOPECIA
     Dosage: UNK
     Route: 061
     Dates: start: 20151101, end: 20160525
  2. MINOXIDIL. [Suspect]
     Active Substance: MINOXIDIL
     Indication: ANDROGENETIC ALOPECIA
     Dosage: 5 %, CYCLE
     Route: 061
     Dates: start: 20151101, end: 20160525
  3. FINASTERIDE. [Suspect]
     Active Substance: FINASTERIDE
     Indication: ANDROGENETIC ALOPECIA
     Dosage: 1 MG, QD
     Route: 048
  4. PROGESTERONE. [Suspect]
     Active Substance: PROGESTERONE
     Indication: ANDROGENETIC ALOPECIA
     Dosage: 1 %, CYCLE
     Route: 061
     Dates: start: 20151101, end: 20160525

REACTIONS (2)
  - Venous thrombosis [Recovered/Resolved]
  - Cerebral infarction [Recovered/Resolved with Sequelae]

NARRATIVE: CASE EVENT DATE: 20160525
